FAERS Safety Report 6814981-X (Version None)
Quarter: 2010Q3

REPORT INFORMATION
  Report Type: 
  Country: None (occurrence: None)
  Receive Date: 20100702
  Receipt Date: 20080226
  Transmission Date: 20110219
  Serious: Yes (Hospitalization)
  Sender: FDA-Public Use
  Company Number: CA-ROCHE-712255

PATIENT
  Sex: Male
  Weight: 80 kg

DRUGS (6)
  1. CAPECITABINE [Suspect]
     Dosage: FREQUENCY: D1-D14 Q 3 WEEKS
     Route: 048
     Dates: start: 20060901, end: 20070501
  2. OXALIPLATIN [Suspect]
     Route: 042
     Dates: start: 20060901, end: 20070424
  3. IRINOTECAN HCL [Suspect]
     Route: 042
     Dates: start: 20060901, end: 20070424
  4. ZOFRAN [Concomitant]
     Dosage: TOTAL DAILY DOSE: PRN,
     Dates: start: 20060901
  5. MAALOX [Concomitant]
     Dosage: TOTAL DAILY DOSE: PRN
     Dates: start: 20070424, end: 20070430
  6. ATIVAN [Concomitant]
     Dates: start: 20070424, end: 20070424

REACTIONS (1)
  - FEBRILE NEUTROPENIA [None]
